FAERS Safety Report 4462652-X (Version None)
Quarter: 2004Q3

REPORT INFORMATION
  Report Type: 
  Country: None (occurrence: None)
  Receive Date: 20040929
  Receipt Date: 20040910
  Transmission Date: 20050211
  Serious: Yes (Other)
  Sender: FDA-Public Use
  Company Number: 239232

PATIENT
  Age: 41 Year
  Sex: Female
  Weight: 133.8 kg

DRUGS (2)
  1. NOVOLIN R [Suspect]
     Indication: INSULIN-REQUIRING TYPE II DIABETES MELLITUS
     Dosage: 140 IU,QD, SUBCUTANEOUS
     Route: 058
     Dates: start: 20040821, end: 20040821
  2. ZOCOR ^DIECKAMNN^ (SIMVASTATIN) [Concomitant]

REACTIONS (7)
  - ATRIOVENTRICULAR BLOCK [None]
  - BLOOD CHOLESTEROL INCREASED [None]
  - BLOOD GLUCOSE DECREASED [None]
  - CARDIAC DISORDER [None]
  - CHEST DISCOMFORT [None]
  - DYSPNOEA [None]
  - MEDICATION ERROR [None]
